FAERS Safety Report 18905089 (Version 2)
Quarter: 2021Q1

REPORT INFORMATION
  Report Type: Spontaneous
  Country: AU (occurrence: AU)
  Receive Date: 20210217
  Receipt Date: 20210222
  Transmission Date: 20210420
  Serious: Yes (Other)
  Sender: FDA-Public Use
  Company Number: AU-B.I. PHARMACEUTICALS,INC./RIDGEFIELD-2021-BI-082180

PATIENT

DRUGS (1)
  1. OFEV [Suspect]
     Active Substance: NINTEDANIB
     Indication: PRODUCT USED FOR UNKNOWN INDICATION

REACTIONS (13)
  - Nausea [Unknown]
  - Fatigue [Unknown]
  - Pneumonia aspiration [Unknown]
  - Asthenia [Unknown]
  - Headache [Unknown]
  - Diarrhoea [Unknown]
  - Bronchitis [Unknown]
  - Oesophageal spasm [Unknown]
  - Panic attack [Unknown]
  - Cough [Unknown]
  - Vomiting [Unknown]
  - Dyspnoea [Unknown]
  - Gastrooesophageal reflux disease [Unknown]
